FAERS Safety Report 6655358-X (Version None)
Quarter: 2010Q1

REPORT INFORMATION
  Report Type: 
  Country: None (occurrence: None)
  Receive Date: 20100329
  Receipt Date: 20100318
  Transmission Date: 20100710
  Serious: Yes (Other)
  Sender: FDA-Public Use
  Company Number: PHEH2010US02314

PATIENT
  Sex: Female

DRUGS (25)
  1. ESTROGEN [Suspect]
     Dosage: UNK
     Dates: start: 19860101, end: 19870101
  2. GLEEVEC [Concomitant]
     Indication: CHRONIC MYELOID LEUKAEMIA
     Dosage: 400 MG / DAILY
     Route: 048
  3. INTERFERON [Concomitant]
     Dosage: 12 MILLION UNITS / DAILY
  4. ATIVAN [Concomitant]
     Dosage: 0.5 MG / QHS
     Route: 048
  5. FLEXERIL [Concomitant]
     Dosage: UNK / PRN
  6. DARVOCET-N 100 [Concomitant]
     Dosage: UNK / PRN
  7. DILAUDID [Concomitant]
     Dosage: 1 MG
  8. PHENERGAN ^AVENTIS PHARMA^ [Concomitant]
     Dosage: 25 MG
  9. LORAZEPAM [Concomitant]
     Dosage: 1 MG
  10. IBUPROFEN [Concomitant]
     Dosage: 800 MG
  11. CIPRO [Concomitant]
     Dosage: 500 MG
  12. PENLAC [Concomitant]
     Dosage: UNK
  13. ZITHROMAX [Concomitant]
     Dosage: 250 MG
  14. TOBRADEX [Concomitant]
     Dosage: UNK
  15. NEURONTIN [Concomitant]
     Dosage: 300  MG
  16. CYCLOBENZAPRINE [Concomitant]
     Dosage: 10 MG
  17. VALTREX [Concomitant]
     Dosage: 1 GM
  18. PROMETHAZINE [Concomitant]
     Dosage: 25 MG
  19. AZITHROMYCIN [Concomitant]
     Dosage: 250 MG
  20. GUAIFENEX DM [Concomitant]
     Dosage: UNK
  21. BIAXIN [Concomitant]
     Dosage: 500 MG
  22. FEXOFENADINE HCL [Concomitant]
     Dosage: 180 MG
  23. CLINDAMYCIN HYDROCHLORIDE [Concomitant]
     Dosage: 300 MG
  24. KEFLEX [Suspect]
  25. DURATUSS [Concomitant]

REACTIONS (16)
  - ANAEMIA [None]
  - ANXIETY [None]
  - BREAST CANCER [None]
  - BREAST RECONSTRUCTION [None]
  - BRONCHITIS [None]
  - CYST [None]
  - FALL [None]
  - FIBROCYSTIC BREAST DISEASE [None]
  - HYSTERECTOMY [None]
  - MASTECTOMY [None]
  - NEUTROPENIA [None]
  - OSTEOPENIA [None]
  - PAIN [None]
  - SALPINGO-OOPHORECTOMY BILATERAL [None]
  - SPINAL OSTEOARTHRITIS [None]
  - URINARY TRACT INFECTION [None]
